FAERS Safety Report 8606375-1 (Version None)
Quarter: 2012Q3

REPORT INFORMATION
  Report Type: 
  Country: None (occurrence: None)
  Receive Date: 20120820
  Receipt Date: 20120814
  Transmission Date: 20120928
  Serious: Yes (Life-Threatening, Hospitalization, Other)
  Sender: FDA-Public Use
  Company Number: PL-BAXTER-2012BAX012534

PATIENT
  Sex: Male
  Weight: 75 kg

DRUGS (2)
  1. KIOVIG [Suspect]
  2. KIOVIG [Suspect]
     Dosage: (50 ML ADMINISTERED)
     Route: 042
     Dates: start: 20120424, end: 20120424

REACTIONS (5)
  - HAEMOLYSIS [None]
  - CHILLS [None]
  - BLOOD PRESSURE DECREASED [None]
  - YELLOW SKIN [None]
  - PYREXIA [None]
